FAERS Safety Report 5951584-3 (Version None)
Quarter: 2008Q4

REPORT INFORMATION
  Report Type: 
  Country: None (occurrence: None)
  Receive Date: 20081113
  Receipt Date: 20081031
  Transmission Date: 20090506
  Serious: Yes (Other)
  Sender: FDA-Public Use
  Company Number: PHBS2008AU06304

PATIENT
  Age: 73 Year
  Sex: Male

DRUGS (4)
  1. PILOCARPINE [Suspect]
     Indication: INTRAOCULAR PRESSURE INCREASED
  2. TIMOLOL MALEATE [Suspect]
     Indication: INTRAOCULAR PRESSURE INCREASED
  3. IOPIDINE [Concomitant]
  4. ACETAZOLAMIDE [Concomitant]

REACTIONS (2)
  - CORNEAL OEDEMA [None]
  - INTRAOCULAR PRESSURE INCREASED [None]
